FAERS Safety Report 9950991 (Version 2)
Quarter: 2014Q1

REPORT INFORMATION
  Report Type: Report from Study
  Country: US (occurrence: US)
  Receive Date: 20140304
  Receipt Date: 20140304
  Transmission Date: 20141002
  Serious: No
  Sender: FDA-Public Use
  Company Number: US-ABBVIE-12P-163-0930574-00

PATIENT
  Age: 57 Year
  Sex: Female
  Weight: 60.84 kg

DRUGS (4)
  1. HUMIRA 40 MG/0.8 ML PEN [Suspect]
     Indication: PSORIASIS
     Dates: start: 201104
  2. HUMIRA 40 MG/0.8 ML PEN [Suspect]
     Indication: PSORIATIC ARTHROPATHY
  3. LYRICA [Suspect]
  4. DERMACIDE [Concomitant]
     Indication: PSORIASIS

REACTIONS (16)
  - Pneumonia [Recovered/Resolved]
  - Kidney infection [Recovered/Resolved]
  - Herpes zoster [Not Recovered/Not Resolved]
  - Back pain [Unknown]
  - Skin discolouration [Unknown]
  - Urticaria [Unknown]
  - Burning sensation [Unknown]
  - Nerve injury [Not Recovered/Not Resolved]
  - Injection site pain [Recovered/Resolved]
  - Incorrect dose administered [Unknown]
  - Injection site urticaria [Recovered/Resolved]
  - Device malfunction [Unknown]
  - Injection site pain [Recovered/Resolved]
  - Incorrect dose administered [Unknown]
  - Injection site urticaria [Recovered/Resolved]
  - Device malfunction [Unknown]
